FAERS Safety Report 5452980-3 (Version None)
Quarter: 2007Q3

REPORT INFORMATION
  Report Type: 
  Country: None (occurrence: None)
  Receive Date: 20070914
  Receipt Date: 20070911
  Transmission Date: 20080115
  Serious: Yes (Other)
  Sender: FDA-Public Use
  Company Number: US-SHR-US-2007-013145

PATIENT
  Age: 53 Year
  Sex: Male

DRUGS (3)
  1. MAGNEVIST [Suspect]
     Dosage: 14 ML, 1 DOSE
     Route: 042
     Dates: start: 20030218, end: 20030218
  2. MAGNEVIST [Suspect]
     Dosage: 14 ML, 1 DOSE
     Route: 042
     Dates: start: 20051208, end: 20051208
  3. MAGNEVIST [Suspect]
     Dosage: 20 ML, 1 DOSE
     Route: 042
     Dates: start: 20061216, end: 20061216

REACTIONS (3)
  - MASS [None]
  - NEPHROGENIC SYSTEMIC FIBROSIS [None]
  - UPPER EXTREMITY MASS [None]
